FAERS Safety Report 23491199 (Version 1)
Quarter: 2024Q1

REPORT INFORMATION
  Report Type: Spontaneous
  Country: CN (occurrence: CN)
  Receive Date: 20240207
  Receipt Date: 20240207
  Transmission Date: 20240409
  Serious: Yes (Hospitalization)
  Sender: FDA-Public Use
  Company Number: CN-SHANGHAI JUNSHI BIOSCIENCES CO., LTD.-CN2024009237

PATIENT

DRUGS (14)
  1. TORIPALIMAB [Suspect]
     Active Substance: TORIPALIMAB
     Indication: Oesophageal carcinoma
     Dosage: 240 MG (D3)
     Route: 041
     Dates: start: 20230721, end: 20230721
  2. TORIPALIMAB [Suspect]
     Active Substance: TORIPALIMAB
     Dosage: 240 MG (D3)
     Route: 041
     Dates: start: 20230813, end: 20230813
  3. TORIPALIMAB [Suspect]
     Active Substance: TORIPALIMAB
     Dosage: 240 MG (D3)
     Route: 041
     Dates: start: 20230923, end: 20230923
  4. TORIPALIMAB [Suspect]
     Active Substance: TORIPALIMAB
     Dosage: 240 MG (D1)
     Route: 041
     Dates: start: 20240109, end: 20240109
  5. PACLITAXEL [Suspect]
     Active Substance: PACLITAXEL
     Indication: Oesophageal carcinoma
     Dosage: 450 MG (D1)
     Route: 041
     Dates: start: 20230721, end: 20230721
  6. PACLITAXEL [Suspect]
     Active Substance: PACLITAXEL
     Dosage: 450 MG (D1)
     Route: 041
     Dates: start: 20230813, end: 20230813
  7. PACLITAXEL [Suspect]
     Active Substance: PACLITAXEL
     Dosage: 450 MG (D1)
     Route: 041
     Dates: start: 20230923, end: 20230923
  8. PACLITAXEL [Suspect]
     Active Substance: PACLITAXEL
     Dosage: 450 MG (D1)
     Route: 041
     Dates: start: 20231019, end: 20231019
  9. PACLITAXEL [Suspect]
     Active Substance: PACLITAXEL
     Dosage: 400 MG (D2)
     Route: 041
     Dates: start: 20240109, end: 20240109
  10. NEDAPLATIN [Suspect]
     Active Substance: NEDAPLATIN
     Indication: Oesophageal carcinoma
     Dosage: 130 MG (D2)
     Route: 041
     Dates: start: 20230721, end: 20230721
  11. NEDAPLATIN [Suspect]
     Active Substance: NEDAPLATIN
     Dosage: 130 MG (D2)
     Route: 041
     Dates: start: 20230813, end: 20230813
  12. NEDAPLATIN [Suspect]
     Active Substance: NEDAPLATIN
     Dosage: 130 MG (D2)
     Route: 041
     Dates: start: 20230923, end: 20230923
  13. NEDAPLATIN [Suspect]
     Active Substance: NEDAPLATIN
     Dosage: 130 MG (D2)
     Route: 041
     Dates: start: 20231019, end: 20231019
  14. NEDAPLATIN [Suspect]
     Active Substance: NEDAPLATIN
     Dosage: 120 MG (D3)
     Route: 041
     Dates: start: 20240109, end: 20240109

REACTIONS (2)
  - Myelosuppression [Recovering/Resolving]
  - Off label use [Unknown]

NARRATIVE: CASE EVENT DATE: 20230721
